FAERS Safety Report 4401040-9 (Version None)
Quarter: 2004Q3

REPORT INFORMATION
  Report Type: 
  Country: None (occurrence: None)
  Receive Date: 20040907
  Receipt Date: 20031003
  Transmission Date: 20050211
  Serious: Yes (Life-Threatening, Hospitalization)
  Sender: FDA-Public Use
  Company Number: US-BRISTOL-MYERS SQUIBB COMPANY-12401196

PATIENT
  Sex: Male

DRUGS (7)
  1. COUMADIN [Suspect]
     Indication: CORONARY ARTERIAL STENT INSERTION
     Dates: start: 20020605
  2. PLAVIX [Suspect]
     Indication: CORONARY ARTERIAL STENT INSERTION
     Dates: start: 20020605
  3. ASPIRIN [Suspect]
  4. ZOLOFT [Concomitant]
     Indication: DEPRESSION
     Dates: start: 20020501
  5. ALTACE [Concomitant]
  6. LOPRESSOR [Concomitant]
  7. MULTI-VITAMIN [Concomitant]

REACTIONS (1)
  - CEREBRAL HAEMORRHAGE [None]
